FAERS Safety Report 6035398-4 (Version None)
Quarter: 2009Q1

REPORT INFORMATION
  Report Type: 
  Country: None (occurrence: None)
  Receive Date: 20090112
  Receipt Date: 20090112
  Transmission Date: 20090719
  Serious: No
  Sender: FDA-Public Use
  Company Number: None

PATIENT
  Age: 29 Year
  Sex: Female
  Weight: 65.7716 kg

DRUGS (1)
  1. NICOTINE [Suspect]
     Indication: NICOTINE DEPENDENCE
     Dosage: 1 STICK EVERY 3 OR 4 HOURS PO
     Route: 048
     Dates: start: 20081226, end: 20081231

REACTIONS (11)
  - ABDOMINAL PAIN [None]
  - BURNING SENSATION [None]
  - EYE PAIN [None]
  - EYE SWELLING [None]
  - FEELING ABNORMAL [None]
  - HICCUPS [None]
  - OCULAR HYPERAEMIA [None]
  - OVERDOSE [None]
  - PRODUCT QUALITY ISSUE [None]
  - THROAT TIGHTNESS [None]
  - VOMITING [None]
